FAERS Safety Report 4620976-7 (Version None)
Quarter: 2005Q1

REPORT INFORMATION
  Report Type: 
  Country: None (occurrence: None)
  Receive Date: 20050328
  Receipt Date: 20040630
  Transmission Date: 20050727
  Serious: Yes (Other)
  Sender: FDA-Public Use
  Company Number: US-AMGEN-US082098

PATIENT
  Sex: Male

DRUGS (1)
  1. ETANERCEPT [Suspect]
     Indication: PSORIASIS
     Route: 058
     Dates: start: 20040609, end: 20040623

REACTIONS (6)
  - ANXIETY [None]
  - DIZZINESS [None]
  - HYPERTENSION [None]
  - NON-CARDIAC CHEST PAIN [None]
  - REFUSAL OF TREATMENT BY PATIENT [None]
  - TACHYCARDIA [None]
